FAERS Safety Report 14757970 (Version 4)
Quarter: 2018Q4

REPORT INFORMATION
  Report Type: Report from Study
  Country: AT (occurrence: AT)
  Receive Date: 20180413
  Receipt Date: 20181213
  Transmission Date: 20190204
  Serious: Yes (Other)
  Sender: FDA-Public Use
  Company Number: AT-TEVA-2018-AT-880599

PATIENT
  Age: 38 Year
  Sex: Male
  Weight: 102 kg

DRUGS (5)
  1. METHYLPREDNISOLONE. [Concomitant]
     Active Substance: METHYLPREDNISOLONE
     Dosage: 4 UNITS NOT REPORTED, ONCE DAILY
     Route: 065
     Dates: start: 20170302, end: 20170801
  2. METHYLPREDNISOLONE. [Concomitant]
     Active Substance: METHYLPREDNISOLONE
     Indication: IMMUNOSUPPRESSANT DRUG THERAPY
     Dosage: 2 UNITS NOT REPORTED, ONCE DAILY
     Route: 065
     Dates: start: 20170131, end: 20170204
  3. PROGRAF [Suspect]
     Active Substance: TACROLIMUS\TACROLIMUS ANHYDROUS
     Indication: PROPHYLAXIS AGAINST TRANSPLANT REJECTION
     Dosage: 1.5 MILLIGRAM DAILY;
     Route: 048
     Dates: start: 20151223
  4. TACROLIMUS. [Suspect]
     Active Substance: TACROLIMUS
     Indication: RENAL TRANSPLANT
     Dosage: 1.5 MILLIGRAM DAILY;
     Route: 065
     Dates: start: 20151203, end: 20151221
  5. METHYLPREDNISOLONE. [Concomitant]
     Active Substance: METHYLPREDNISOLONE
     Dosage: 1 UNITS NOT REPORTED, ONCE DAILY
     Route: 065
     Dates: start: 20170205, end: 20170301

REACTIONS (1)
  - Staphylococcal infection [Not Recovered/Not Resolved]

NARRATIVE: CASE EVENT DATE: 20170305
